FAERS Safety Report 8780396 (Version 1)
Quarter: 2012Q4

REPORT INFORMATION
  Report Type: Spontaneous
  Country: TW (occurrence: None)
  Receive Date: 20120828
  Receipt Date: 20120828
  Transmission Date: 20130627
  Serious: Yes (Other)
  Sender: FDA-Public Use
  Company Number: FK201202398

PATIENT
  Age: 47 Year
  Sex: Female

DRUGS (2)
  1. VANCOMYCIN [Suspect]
     Indication: BACTERIAL INFECTION
     Route: 042
  2. TEICOPLANIN [Suspect]
     Route: 042

REACTIONS (9)
  - Drug hypersensitivity [None]
  - Neutropenia [None]
  - Leukopenia [None]
  - Hepatic enzyme increased [None]
  - Thrombocytopenia [None]
  - Pyrexia [None]
  - Lymphadenopathy [None]
  - Hepatitis [None]
  - Amylase increased [None]
